FAERS Safety Report 25772088 (Version 2)
Quarter: 2025Q3

REPORT INFORMATION
  Report Type: Spontaneous
  Country: US (occurrence: US)
  Receive Date: 20250908
  Receipt Date: 20250922
  Transmission Date: 20251021
  Serious: No
  Sender: SANOFI AVENTIS
  Company Number: US-SA-2025SA266128

PATIENT
  Age: 31 Year
  Sex: Female

DRUGS (1)
  1. DUPIXENT [Suspect]
     Active Substance: DUPILUMAB
     Dosage: 300 MG, QOW
     Route: 058

REACTIONS (7)
  - Lacrimation increased [Unknown]
  - Eczema weeping [Recovering/Resolving]
  - Skin discolouration [Not Recovered/Not Resolved]
  - Scar [Not Recovered/Not Resolved]
  - Ocular hyperaemia [Unknown]
  - Eye pruritus [Unknown]
  - Injection site pain [Unknown]
